FAERS Safety Report 10222333 (Version 3)
Quarter: 2014Q2

REPORT INFORMATION
  Report Type: Spontaneous
  Country: IT (occurrence: IT)
  Receive Date: 20140606
  Receipt Date: 20140627
  Transmission Date: 20141212
  Serious: Yes (Hospitalization, Other)
  Sender: FDA-Public Use
  Company Number: IT-PFIZER INC-2014152401

PATIENT
  Age: 72 Year
  Sex: Male
  Weight: 78 kg

DRUGS (5)
  1. FELDENE FAST [Suspect]
     Indication: ANKYLOSING SPONDYLITIS
     Dosage: 20 MG, DAILY
     Route: 048
     Dates: start: 20140522, end: 20140522
  2. CARDIOASPIRIN [Suspect]
     Indication: ISCHAEMIC HEART DISEASE PROPHYLAXIS
     Dosage: 100 MG, DAILY
     Route: 048
     Dates: start: 20131001, end: 20140526
  3. PREVEX [Suspect]
     Indication: HYPERTENSION
     Dosage: 5 MG, DAILY
     Route: 048
     Dates: start: 20131001
  4. OMEPRAZEN [Concomitant]
     Indication: GASTRIC HAEMORRHAGE
     Dosage: 20 MG, UNK
     Route: 048
     Dates: start: 20131001
  5. COAPROVEL [Concomitant]
     Indication: HYPERTENSION
     Dosage: UNK
     Route: 048
     Dates: start: 20131001

REACTIONS (3)
  - Intentional product misuse [Unknown]
  - Melaena [Recovered/Resolved with Sequelae]
  - Ecchymosis [Recovered/Resolved with Sequelae]
